FAERS Safety Report 24293456 (Version 1)
Quarter: 2024Q3

REPORT INFORMATION
  Report Type: Spontaneous
  Country: US (occurrence: None)
  Receive Date: 20240906
  Receipt Date: 20240906
  Transmission Date: 20241017
  Serious: No
  Sender: DOMPE FARMACEUTICI
  Company Number: US-FARMAPROD-202308-202401-0210

PATIENT
  Age: 78 Year
  Sex: Female

DRUGS (2)
  1. OXERVATE [Interacting]
     Active Substance: CENEGERMIN-BKBJ
     Indication: Neurotrophic keratopathy
     Route: 047
     Dates: start: 20231207
  2. AUTOLOGOUS HUMAN CORNEAL EPITHELIAL CELLS [Interacting]
     Active Substance: AUTOLOGOUS HUMAN CORNEAL EPITHELIAL CELLS
     Indication: Product used for unknown indication

REACTIONS (1)
  - Eye discharge [Unknown]

NARRATIVE: CASE EVENT DATE: 20240119
